FAERS Safety Report 7422735-9 (Version None)
Quarter: 2011Q2

REPORT INFORMATION
  Report Type: 
  Country: None (occurrence: None)
  Receive Date: 20110419
  Receipt Date: 20110406
  Transmission Date: 20111010
  Serious: Yes (Death, Other)
  Sender: FDA-Public Use
  Company Number: JP-JNJFOC-20110406454

PATIENT
  Age: 73 Year
  Sex: Male

DRUGS (3)
  1. HOKUNALIN TAPE [Concomitant]
     Route: 065
  2. SPIRIVA [Concomitant]
     Route: 065
  3. LEVOFLOXACIN [Suspect]
     Indication: PNEUMONIA
     Route: 042

REACTIONS (4)
  - HEPATITIS FULMINANT [None]
  - RESPIRATORY FAILURE [None]
  - INTERSTITIAL LUNG DISEASE [None]
  - PRURITUS [None]
